FAERS Safety Report 9175684 (Version 1)
Quarter: 2013Q1

REPORT INFORMATION
  Report Type: Spontaneous
  Country: ES (occurrence: ES)
  Receive Date: 20130320
  Receipt Date: 20130320
  Transmission Date: 20140127
  Serious: Yes (Death)
  Sender: FDA-Public Use
  Company Number: ES-TEVA-391910ISR

PATIENT
  Sex: 0

DRUGS (4)
  1. EPOPROSTENOL [Suspect]
     Indication: NONKETOTIC HYPERGLYCINAEMIA
     Route: 055
  2. EPOPROSTENOL [Suspect]
     Indication: NONKETOTIC HYPERGLYCINAEMIA
     Route: 042
  3. SILDENAFIL [Suspect]
     Indication: NONKETOTIC HYPERGLYCINAEMIA
     Route: 048
  4. NITRIC OXIDE [Suspect]
     Indication: NONKETOTIC HYPERGLYCINAEMIA
     Route: 055

REACTIONS (3)
  - Pulmonary oedema [Fatal]
  - Pulmonary fibrosis [Fatal]
  - Leukoencephalopathy [Fatal]
